FAERS Safety Report 6025157-0 (Version None)
Quarter: 2008Q4

REPORT INFORMATION
  Report Type: 
  Country: None (occurrence: None)
  Receive Date: 20081231
  Receipt Date: 20081219
  Transmission Date: 20090506
  Serious: Yes (Congenital Anomaly, Other)
  Sender: FDA-Public Use
  Company Number: US-PFIZER INC-2008049931

PATIENT
  Sex: Female
  Weight: 3 kg

DRUGS (6)
  1. ZOLOFT [Suspect]
     Indication: GENERALISED ANXIETY DISORDER
     Route: 064
     Dates: start: 20040101
  2. VISTARIL [Concomitant]
     Indication: ANXIETY
     Dosage: AS NEEDED
  3. VITAMIN TAB [Concomitant]
     Dates: end: 20060830
  4. WELLBUTRIN XL [Concomitant]
     Dates: end: 20060830
  5. AMOXICILLIN [Concomitant]
     Route: 048
     Dates: start: 20060208
  6. ACETAMINOPHEN [Concomitant]

REACTIONS (7)
  - ATRIAL SEPTAL DEFECT [None]
  - DRUG EXPOSURE DURING PREGNANCY [None]
  - GASTROOESOPHAGEAL REFLUX DISEASE [None]
  - JAUNDICE [None]
  - LETHARGY [None]
  - PULMONARY VALVE STENOSIS [None]
  - UNRESPONSIVE TO STIMULI [None]
